FAERS Safety Report 6552805-9 (Version None)
Quarter: 2010Q1

REPORT INFORMATION
  Report Type: 
  Country: None (occurrence: None)
  Receive Date: 20100126
  Receipt Date: 20100115
  Transmission Date: 20100710
  Serious: Yes (Other)
  Sender: FDA-Public Use
  Company Number: CA-JNJCH-2010001410

PATIENT
  Sex: Female

DRUGS (1)
  1. ROLAIDS EXTRA STRENGTH [Suspect]
     Indication: DYSPEPSIA
     Dosage: TEXT:6 TABLETS UNSPECIFIED
     Route: 048
     Dates: start: 20100111, end: 20100111

REACTIONS (5)
  - DIARRHOEA [None]
  - DIZZINESS [None]
  - IMPAIRED WORK ABILITY [None]
  - MALAISE [None]
  - VOMITING [None]
